FAERS Safety Report 21862184 (Version 1)
Quarter: 2023Q1

REPORT INFORMATION
  Report Type: Spontaneous
  Country: TR (occurrence: TR)
  Receive Date: 20230114
  Receipt Date: 20230114
  Transmission Date: 20230418
  Serious: Yes (Other)
  Sender: FDA-Public Use
  Company Number: TR-CELLTRION INC.-2023TR000463

PATIENT

DRUGS (1)
  1. INFLIXIMAB [Suspect]
     Active Substance: INFLIXIMAB
     Indication: Behcet^s syndrome

REACTIONS (2)
  - Sarcoidosis [Unknown]
  - Drug effective for unapproved indication [Unknown]
